FAERS Safety Report 21105586 (Version 1)
Quarter: 2022Q3

REPORT INFORMATION
  Report Type: Spontaneous
  Country: FR (occurrence: FR)
  Receive Date: 20220720
  Receipt Date: 20220720
  Transmission Date: 20221027
  Serious: Yes (Hospitalization, Other)
  Sender: FDA-Public Use
  Company Number: FR-MLMSERVICE-20220707-3664562-1

PATIENT
  Age: 25 Year
  Sex: Female

DRUGS (3)
  1. DIAZEPAM [Suspect]
     Active Substance: DIAZEPAM
     Indication: Product used for unknown indication
     Dates: start: 202005
  2. LAMOTRIGINE [Concomitant]
     Active Substance: LAMOTRIGINE
     Indication: Generalised tonic-clonic seizure
     Dosage: AT LOW DOSE WITH A STEPWISE INCREASE
     Dates: start: 2020
  3. PAROXETINE [Concomitant]
     Active Substance: PAROXETINE
     Indication: Major depression
     Dates: start: 2020

REACTIONS (10)
  - Toxicity to various agents [Unknown]
  - Intentional product misuse [Unknown]
  - Suicide attempt [Unknown]
  - Drug withdrawal syndrome [Unknown]
  - Impatience [Unknown]
  - Suicidal ideation [Unknown]
  - Drug dependence [Unknown]
  - Chills [Unknown]
  - Diarrhoea [Unknown]
  - Anxiety [Unknown]

NARRATIVE: CASE EVENT DATE: 20200501
